FAERS Safety Report 16514069 (Version 1)
Quarter: 2019Q3

REPORT INFORMATION
  Report Type: Spontaneous
  Country: US (occurrence: US)
  Receive Date: 20190702
  Receipt Date: 20190702
  Transmission Date: 20191004
  Serious: Yes (Other)
  Sender: FDA-Public Use
  Company Number: US-AMGEN-USASP2019105254

PATIENT
  Sex: Male

DRUGS (1)
  1. ENBREL [Suspect]
     Active Substance: ETANERCEPT
     Indication: PRODUCT USED FOR UNKNOWN INDICATION
     Dosage: UNK
     Route: 065
     Dates: start: 2004

REACTIONS (15)
  - Type 2 diabetes mellitus [Unknown]
  - Gout [Unknown]
  - Necrosis [Unknown]
  - Femur fracture [Unknown]
  - Gastrooesophageal reflux disease [Unknown]
  - Surgery [Unknown]
  - Tibia fracture [Unknown]
  - Osteoarthritis [Unknown]
  - Neoplasm [Unknown]
  - Renal disorder [Unknown]
  - Osteoporosis [Unknown]
  - Mobility decreased [Unknown]
  - Disorder of orbit [Unknown]
  - Rheumatoid arthritis [Unknown]
  - Fibromyalgia [Unknown]
